FAERS Safety Report 11169734 (Version 2)
Quarter: 2015Q2

REPORT INFORMATION
  Report Type: Spontaneous
  Country: TW (occurrence: TW)
  Receive Date: 20150606
  Receipt Date: 20150606
  Transmission Date: 20150821
  Serious: Yes (Death, Hospitalization, Other)
  Sender: FDA-Public Use
  Company Number: TW-ACCORD-031251

PATIENT
  Age: 52 Year
  Sex: Male

DRUGS (2)
  1. FLUOROURACIL. [Suspect]
     Active Substance: FLUOROURACIL
     Indication: OESOPHAGEAL SQUAMOUS CELL CARCINOMA STAGE III
     Dosage: CONCURRENT CHEMORADIOTHERAPY (CCRT). FOR 6 WEEKS. ONE MONTH LATER, ALSO RECEIVED 1000 MG/M2.
  2. CISPLATIN. [Suspect]
     Active Substance: CISPLATIN
     Indication: OESOPHAGEAL SQUAMOUS CELL CARCINOMA STAGE III
     Dosage: CDDP.?CONCURRENT CHEMORADIOTHERAPY (CCRT).?ONE MONTH LATER, ALSO RECEIVED 70 MG/M2.

REACTIONS (6)
  - Pneumonia [Fatal]
  - Vascular pseudoaneurysm [Recovered/Resolved]
  - Respiratory failure [Unknown]
  - Platelet count decreased [Unknown]
  - Septic shock [Unknown]
  - Aorto-oesophageal fistula [Recovered/Resolved]
